FAERS Safety Report 5822805-2 (Version None)
Quarter: 2008Q3

REPORT INFORMATION
  Report Type: 
  Country: None (occurrence: None)
  Receive Date: 20080721
  Receipt Date: 20080623
  Transmission Date: 20090109
  Serious: Yes (Other)
  Sender: FDA-Public Use
  Company Number: WWISSUE-193

PATIENT

DRUGS (1)
  1. PROPYLTHIOURACIL [Suspect]
     Dates: start: 20080401, end: 20080601

REACTIONS (1)
  - DRUG INEFFECTIVE [None]
